FAERS Safety Report 12880621 (Version 2)
Quarter: 2016Q4

REPORT INFORMATION
  Report Type: Spontaneous
  Country: FR (occurrence: FR)
  Receive Date: 20161025
  Receipt Date: 20161110
  Transmission Date: 20170207
  Serious: Yes (Other)
  Sender: FDA-Public Use
  Company Number: FR-GLAXOSMITHKLINE-FR2016GSK155276

PATIENT
  Age: 67 Year
  Sex: Male

DRUGS (4)
  1. AVODART [Suspect]
     Active Substance: DUTASTERIDE
     Indication: BENIGN PROSTATIC HYPERPLASIA
     Dosage: 0.5 MG, 1D
     Route: 048
     Dates: start: 2000
  2. DIPROSONE [Concomitant]
     Active Substance: BETAMETHASONE DIPROPIONATE
     Indication: ECZEMA
     Dosage: UNK
     Dates: start: 201607
  3. HARPAGOPHYTUM PROCUMBENS [Concomitant]
     Active Substance: HARPAGOPHYTUM PROCUMBENS ROOT
  4. ART [Suspect]
     Active Substance: DIACEREIN
     Indication: OSTEOARTHRITIS
     Dosage: 1 DF, 1D
     Route: 048
     Dates: start: 1996, end: 201512

REACTIONS (1)
  - Pemphigoid [Not Recovered/Not Resolved]

NARRATIVE: CASE EVENT DATE: 201607
